FAERS Safety Report 6529028-2 (Version None)
Quarter: 2009Q4

REPORT INFORMATION
  Report Type: 
  Country: None (occurrence: None)
  Receive Date: 20091229
  Receipt Date: 20091216
  Transmission Date: 20100525
  Serious: Yes (Hospitalization)
  Sender: FDA-Public Use
  Company Number: 2009SP042146

PATIENT
  Age: 29 Year
  Sex: Female
  Weight: 61 kg

DRUGS (4)
  1. GRACIAL (DESOGESTREL/ETHINYLESTRADIOL) [Suspect]
     Indication: CONTRACEPTION
     Dosage: ; PO
     Route: 048
     Dates: start: 20070101
  2. BACTRIM [Concomitant]
  3. BROMOPRIDE [Concomitant]
  4. FLORATIL /00838001/ [Concomitant]

REACTIONS (4)
  - DRUG DOSE OMISSION [None]
  - GASTROENTERITIS ROTAVIRUS [None]
  - METRORRHAGIA [None]
  - STRESS [None]
